FAERS Safety Report 5336872-6 (Version None)
Quarter: 2007Q2

REPORT INFORMATION
  Report Type: 
  Country: None (occurrence: None)
  Receive Date: 20070524
  Receipt Date: 20070524
  Transmission Date: 20071010
  Serious: Yes (Other)
  Sender: FDA-Public Use
  Company Number: None

PATIENT
  Sex: Female

DRUGS (10)
  1. REVLIMID [Suspect]
     Indication: MULTIPLE MYELOMA
     Dosage: 25 MG DAILY FOR 21 DAYS PO
     Route: 048
     Dates: start: 20070305, end: 20070321
  2. DEXAMETHASONE 4MG TAB [Suspect]
     Indication: MULTIPLE MYELOMA
     Dosage: 4MG DAILY X4D EVERY 5D PO
     Route: 048
     Dates: start: 20070306, end: 20070321
  3. FUROSEMIDE [Concomitant]
  4. COZAAR [Concomitant]
  5. QVAR 40 [Concomitant]
  6. PROVENTIL-HFA [Concomitant]
  7. FAMOTIDINE [Concomitant]
  8. ATENOLOL [Concomitant]
  9. DEXAMETHASONE TAB [Concomitant]
  10. LEVOTHYROXINE SODIUM [Concomitant]

REACTIONS (8)
  - ASTHENIA [None]
  - DYSGEUSIA [None]
  - FATIGUE [None]
  - HOT FLUSH [None]
  - MUSCLE SPASMS [None]
  - SKIN BURNING SENSATION [None]
  - VISION BLURRED [None]
  - WEIGHT DECREASED [None]
